FAERS Safety Report 25440386 (Version 3)
Quarter: 2025Q4

REPORT INFORMATION
  Report Type: Report from Study
  Country: CA (occurrence: CA)
  Receive Date: 20250616
  Receipt Date: 20251231
  Transmission Date: 20260118
  Serious: Yes (Life-Threatening, Other)
  Sender: NOVARTIS
  Company Number: CA-002147023-NVSC2025CA095153

PATIENT
  Age: 62 Year
  Sex: Male
  Weight: 86.3 kg

DRUGS (3)
  1. LEQVIO [Suspect]
     Active Substance: INCLISIRAN SODIUM
     Indication: Type IIa hyperlipidaemia
     Dosage: 284 MG, OTHER (BASELINE, 3 MONTHS, EVERY 6 MONTHS THEREAFTER)
     Route: 058
     Dates: start: 20240912
  2. LEQVIO [Suspect]
     Active Substance: INCLISIRAN SODIUM
     Indication: Dyslipidaemia
  3. CRESTOR [Concomitant]
     Active Substance: ROSUVASTATIN CALCIUM
     Indication: Product used for unknown indication
     Dosage: UNK
     Route: 065

REACTIONS (5)
  - Electrocardiogram ST segment elevation [Recovering/Resolving]
  - Myocardial infarction [Recovered/Resolved]
  - Haemoglobin decreased [Unknown]
  - Coronary artery disease [Recovered/Resolved]
  - Ejection fraction decreased [Recovering/Resolving]

NARRATIVE: CASE EVENT DATE: 20241208
